FAERS Safety Report 12646272 (Version 2)
Quarter: 2016Q3

REPORT INFORMATION
  Report Type: Spontaneous
  Country: US (occurrence: US)
  Receive Date: 20160812
  Receipt Date: 20160907
  Transmission Date: 20161109
  Serious: Yes (Hospitalization)
  Sender: FDA-Public Use
  Company Number: US-ASTRAZENECA-2016SE81940

PATIENT
  Age: 22749 Day
  Sex: Male
  Weight: 81.2 kg

DRUGS (9)
  1. BRILINTA [Suspect]
     Active Substance: TICAGRELOR
     Indication: ACUTE CORONARY SYNDROME
     Route: 048
  2. LISINOPRIL. [Concomitant]
     Active Substance: LISINOPRIL
  3. ASPIRIN. [Concomitant]
     Active Substance: ASPIRIN
  4. ANTIHISTAMINE [Concomitant]
     Active Substance: UNSPECIFIED INGREDIENT
     Dosage: AS NEEDED
  5. ATENOLOL. [Concomitant]
     Active Substance: ATENOLOL
  6. NORCO [Concomitant]
     Active Substance: ACETAMINOPHEN\HYDROCODONE BITARTRATE
     Dosage: 10-32.5 MG TABLET 1 TABLET AS NEEDED EVERY 6 HRS
     Route: 048
  7. LIPITOR [Concomitant]
     Active Substance: ATORVASTATIN CALCIUM
  8. XANAX [Concomitant]
     Active Substance: ALPRAZOLAM
     Route: 048
  9. METOPROLOL TARTRATE. [Suspect]
     Active Substance: METOPROLOL TARTRATE
     Route: 048

REACTIONS (10)
  - Chest pain [Unknown]
  - Acute myocardial infarction [Unknown]
  - Cough [Unknown]
  - Asthenia [Unknown]
  - Drug dose omission [Unknown]
  - Confusional state [Unknown]
  - Arthralgia [Unknown]
  - Hyperhidrosis [Recovering/Resolving]
  - Dyspnoea [Unknown]
  - Anger [Unknown]

NARRATIVE: CASE EVENT DATE: 20160722
